FAERS Safety Report 18734889 (Version 1)
Quarter: 2021Q1

REPORT INFORMATION
  Report Type: Spontaneous
  Country: US (occurrence: US)
  Receive Date: 20210113
  Receipt Date: 20210113
  Transmission Date: 20210419
  Serious: No
  Sender: FDA-Public Use
  Company Number: US-GLAXOSMITHKLINE-US2021AMR005737

PATIENT
  Sex: Female

DRUGS (1)
  1. ZEJULA [Suspect]
     Active Substance: NIRAPARIB
     Indication: OVARIAN CANCER
     Dosage: 300 MG, QD (QPM)
     Dates: start: 20201217

REACTIONS (5)
  - Atrial flutter [Unknown]
  - Thyroid disorder [Unknown]
  - Dizziness [Unknown]
  - Cardiac murmur [Unknown]
  - Platelet count decreased [Unknown]
